FAERS Safety Report 5888997-4 (Version None)
Quarter: 2008Q3

REPORT INFORMATION
  Report Type: 
  Country: None (occurrence: None)
  Receive Date: 20080919
  Receipt Date: 20080603
  Transmission Date: 20090109
  Serious: No
  Sender: FDA-Public Use
  Company Number: US-BAYER-200824634NA

PATIENT
  Age: 80 Year
  Sex: Female
  Weight: 70 kg

DRUGS (3)
  1. PRECOSE [Suspect]
     Indication: DIABETES MELLITUS
     Route: 048
     Dates: start: 20080101
  2. PRECOSE [Suspect]
     Route: 048
     Dates: start: 20080515
  3. ACTOS [Suspect]

REACTIONS (2)
  - FLATULENCE [None]
  - URTICARIA [None]
